FAERS Safety Report 7600369-0 (Version None)
Quarter: 2011Q3

REPORT INFORMATION
  Report Type: 
  Country: None (occurrence: None)
  Receive Date: 20110711
  Receipt Date: 20110629
  Transmission Date: 20111222
  Serious: Yes (Death, Life-Threatening, Other)
  Sender: FDA-Public Use
  Company Number: US-ELI_LILLY_AND_COMPANY-US201006002037

PATIENT
  Sex: Female

DRUGS (4)
  1. FORTEO [Suspect]
     Dosage: 20 UG, QD
     Route: 065
  2. FORTEO [Suspect]
     Dosage: 20 UG, QD
     Route: 065
  3. ANTIHYPERTENSIVES [Concomitant]
  4. FORTEO [Suspect]
     Indication: OSTEOPOROSIS
     Dosage: 20 UG, QD
     Dates: start: 20100401

REACTIONS (7)
  - BRAIN HYPOXIA [None]
  - COMA [None]
  - DEATH [None]
  - LUNG ADENOCARCINOMA STAGE I [None]
  - PROCEDURAL COMPLICATION [None]
  - APALLIC SYNDROME [None]
  - INJECTION SITE HAEMATOMA [None]
